FAERS Safety Report 6299185-4 (Version None)
Quarter: 2009Q3

REPORT INFORMATION
  Report Type: 
  Country: None (occurrence: None)
  Receive Date: 20090806
  Receipt Date: 20090730
  Transmission Date: 20100115
  Serious: Yes (Hospitalization)
  Sender: FDA-Public Use
  Company Number: FR-ASTRAZENECA-2009SE06310

PATIENT
  Age: 20471 Day
  Sex: Male

DRUGS (10)
  1. CRESTOR [Suspect]
     Route: 048
     Dates: end: 20090714
  2. TRIATEC [Suspect]
     Route: 048
     Dates: end: 20090714
  3. SPIRONOLACTONE [Suspect]
     Route: 048
     Dates: end: 20090714
  4. METFORMIN HCL [Suspect]
     Route: 048
     Dates: end: 20090714
  5. XELEVIA [Suspect]
     Route: 048
     Dates: end: 20090714
  6. PLAVIX [Suspect]
     Route: 048
     Dates: end: 20090714
  7. BISOPROLOL [Suspect]
     Route: 048
     Dates: end: 20090714
  8. FLUOXETINE [Suspect]
     Route: 048
     Dates: end: 20090714
  9. ATARAX [Concomitant]
  10. NEXIUM [Concomitant]

REACTIONS (2)
  - NEPHROPATHY TOXIC [None]
  - RENAL FAILURE ACUTE [None]
